FAERS Safety Report 5885498-4 (Version None)
Quarter: 2008Q3

REPORT INFORMATION
  Report Type: 
  Country: None (occurrence: None)
  Receive Date: 20080915
  Receipt Date: 20080915
  Transmission Date: 20090109
  Serious: Yes (Other)
  Sender: FDA-Public Use
  Company Number: None

PATIENT
  Sex: Female

DRUGS (1)
  1. PHENTERMINE [Suspect]

REACTIONS (6)
  - BURNING SENSATION [None]
  - PRURITUS [None]
  - RASH [None]
  - SCAR [None]
  - SKIN EXFOLIATION [None]
  - SKIN ULCER [None]
